FAERS Safety Report 11513073 (Version 1)
Quarter: 2015Q3

REPORT INFORMATION
  Report Type: Spontaneous
  Country: US (occurrence: US)
  Receive Date: 20150903
  Receipt Date: 20150903
  Transmission Date: 20151125
  Serious: No
  Sender: FDA-Public Use
  Company Number: US-ELI_LILLY_AND_COMPANY-US201209007319

PATIENT
  Age: 41 Year
  Sex: Female

DRUGS (6)
  1. CYMBALTA [Suspect]
     Active Substance: DULOXETINE HYDROCHLORIDE
     Dosage: 120 MG, QD
     Dates: end: 201207
  2. SULFASALAZINE. [Concomitant]
     Active Substance: SULFASALAZINE
  3. CYMBALTA [Suspect]
     Active Substance: DULOXETINE HYDROCHLORIDE
     Indication: DEPRESSION
     Dosage: 90 MG, QD
     Dates: start: 201111
  4. CYMBALTA [Suspect]
     Active Substance: DULOXETINE HYDROCHLORIDE
     Dosage: 120 MG, QD
     Dates: start: 20120910, end: 20120921
  5. ABILIFY [Concomitant]
     Active Substance: ARIPIPRAZOLE
  6. CLONAZEPAM. [Concomitant]
     Active Substance: CLONAZEPAM

REACTIONS (10)
  - Adverse event [Unknown]
  - Drug withdrawal syndrome [Unknown]
  - Vision blurred [Unknown]
  - Hypoaesthesia [Unknown]
  - Off label use [Unknown]
  - Decreased activity [Unknown]
  - Memory impairment [Unknown]
  - Nausea [Unknown]
  - Hypoaesthesia oral [Unknown]
  - Paraesthesia [Unknown]

NARRATIVE: CASE EVENT DATE: 20120921
